FAERS Safety Report 4980934-X (Version None)
Quarter: 2006Q2

REPORT INFORMATION
  Report Type: 
  Country: None (occurrence: None)
  Receive Date: 20060418
  Receipt Date: 20060330
  Transmission Date: 20061013
  Serious: Yes (Other)
  Sender: FDA-Public Use
  Company Number: US200604000236

PATIENT
  Age: 50 Year
  Sex: Male

DRUGS (2)
  1. PROZAC [Suspect]
     Dosage: SEE IMAGE
     Dates: start: 19900101
  2. STRATTERA [Suspect]
     Dosage: SEE IMAGE
     Dates: start: 20040101, end: 20060101

REACTIONS (1)
  - CEREBROVASCULAR ACCIDENT [None]
